FAERS Safety Report 5409396-5 (Version None)
Quarter: 2007Q3

REPORT INFORMATION
  Report Type: 
  Country: None (occurrence: None)
  Receive Date: 20070807
  Receipt Date: 20070730
  Transmission Date: 20080115
  Serious: Yes (Death)
  Sender: FDA-Public Use
  Company Number: THYR-10447

PATIENT
  Age: 72 Year
  Sex: Female

DRUGS (11)
  1. THYROGEN [Suspect]
     Indication: DIAGNOSTIC PROCEDURE
     Dosage: 0.9 MG ONCE IM
     Route: 030
     Dates: start: 20070526, end: 20070526
  2. FENTANYL [Concomitant]
  3. DEXAMETHASONE 0.5MG TAB [Concomitant]
  4. PARACETAMOL [Concomitant]
  5. MORPHINE [Concomitant]
  6. BROMAZEPAM [Concomitant]
  7. ESOMEPRAZOLE MAGNESIUM [Concomitant]
  8. DOMPERIDONE [Concomitant]
  9. LEVOTHYROXINE SODIUM [Concomitant]
  10. ITRACONAZOLE [Concomitant]
  11. CIPROFLOXACIN [Concomitant]

REACTIONS (1)
  - DEATH [None]
